FAERS Safety Report 6357759-6 (Version None)
Quarter: 2009Q3

REPORT INFORMATION
  Report Type: 
  Country: None (occurrence: None)
  Receive Date: 20090916
  Receipt Date: 20090907
  Transmission Date: 20100115
  Serious: Yes (Other)
  Sender: FDA-Public Use
  Company Number: CA-B.I. PHARMACEUTICALS,INC./RIDGEFIELD-2009-DE-05863GD

PATIENT
  Sex: Female

DRUGS (3)
  1. NEVIRAPINE [Suspect]
     Indication: HIV INFECTION
     Dosage: 400 MG
     Dates: start: 20021001
  2. COMBIVIR [Suspect]
     Indication: HIV INFECTION
     Dosage: ONE TABLET TWICE DAILY
     Route: 048
     Dates: start: 20021001
  3. TRIMETHOPRIM + SULFAMETHOXAZOLE [Concomitant]
     Indication: ANTIFUNGAL PROPHYLAXIS

REACTIONS (4)
  - CELLULITIS STAPHYLOCOCCAL [None]
  - GENITAL HERPES [None]
  - IMMUNE RECONSTITUTION SYNDROME [None]
  - PUNCTURE SITE INFECTION [None]
